FAERS Safety Report 5570239-0 (Version None)
Quarter: 2007Q4

REPORT INFORMATION
  Report Type: 
  Country: None (occurrence: None)
  Receive Date: 20071220
  Receipt Date: 20071213
  Transmission Date: 20080405
  Serious: Yes (Life-Threatening)
  Sender: FDA-Public Use
  Company Number: IT-PFIZER INC-2007105652

PATIENT
  Sex: Female

DRUGS (1)
  1. ZOLOFT [Suspect]
     Indication: DEPRESSION
     Dosage: DAILY DOSE:50MG
     Route: 048
     Dates: start: 20070828, end: 20070910

REACTIONS (3)
  - DERMATITIS ALLERGIC [None]
  - EOSINOPHILIA [None]
  - PNEUMONIA [None]
